FAERS Safety Report 7378877-X (Version None)
Quarter: 2011Q1

REPORT INFORMATION
  Report Type: 
  Country: None (occurrence: None)
  Receive Date: 20110328
  Receipt Date: 20110322
  Transmission Date: 20110831
  Serious: Yes (Other)
  Sender: FDA-Public Use
  Company Number: US-PFIZER INC-2010159413

PATIENT
  Sex: Female

DRUGS (1)
  1. XALATAN [Suspect]
     Indication: GLAUCOMA
     Dosage: 1 OR 2 DROPS  AT BEDTIME
     Route: 047
     Dates: start: 20080117

REACTIONS (5)
  - EYE PAIN [None]
  - EYE IRRITATION [None]
  - CEREBROVASCULAR ACCIDENT [None]
  - SYNCOPE [None]
  - CORNEAL ABRASION [None]
